FAERS Safety Report 10730161 (Version 1)
Quarter: 2015Q1

REPORT INFORMATION
  Report Type: Spontaneous
  Country: JP (occurrence: JP)
  Receive Date: 20150122
  Receipt Date: 20150122
  Transmission Date: 20150721
  Serious: Yes (Hospitalization)
  Sender: FDA-Public Use
  Company Number: JP-009507513-2009SP000905

PATIENT
  Age: 87 Year
  Sex: Male
  Weight: 56 kg

DRUGS (8)
  1. AROGLYCEM [Suspect]
     Active Substance: DIAZOXIDE
     Indication: INSULINOMA
     Dosage: 150 MG, QD
     Route: 048
     Dates: start: 20060302, end: 20060309
  2. AROGLYCEM [Suspect]
     Active Substance: DIAZOXIDE
     Dosage: 150 MG, QD
     Route: 048
     Dates: end: 20060508
  3. AROGLYCEM [Suspect]
     Active Substance: DIAZOXIDE
     Dosage: 75 MG, QD
     Route: 048
     Dates: start: 20060328
  4. AROGLYCEM [Suspect]
     Active Substance: DIAZOXIDE
     Dosage: 50 MG, QD
     Route: 048
     Dates: start: 20060522
  5. NORVASC [Concomitant]
     Active Substance: AMLODIPINE BESYLATE
     Indication: HYPERTENSION
     Dosage: 5 MG, QD
     Route: 048
     Dates: start: 20060213, end: 20060508
  6. PROMAC (POLAPREZINC) [Concomitant]
     Active Substance: POLAPREZINC
     Indication: GASTRITIS
     Dosage: 150 MG, QD
     Route: 048
     Dates: start: 20060213, end: 20060308
  7. PURSENNID (SENNOSIDES) [Concomitant]
     Indication: CONSTIPATION
     Dosage: 24 MG, QD
     Route: 048
     Dates: start: 20060213
  8. MAGNESIUM OXIDE. [Concomitant]
     Active Substance: MAGNESIUM OXIDE
     Indication: CONSTIPATION
     Dosage: 1.5 G, QD
     Route: 048
     Dates: start: 20060213, end: 20060308

REACTIONS (3)
  - Cardiac failure congestive [Recovered/Resolved]
  - Renal impairment [Recovered/Resolved]
  - Decreased appetite [Unknown]

NARRATIVE: CASE EVENT DATE: 20060309
